FAERS Safety Report 15057979 (Version 1)
Quarter: 2018Q2

REPORT INFORMATION
  Report Type: Spontaneous
  Country: US (occurrence: US)
  Receive Date: 20180625
  Receipt Date: 20180625
  Transmission Date: 20180711
  Serious: No
  Sender: FDA-Public Use
  Company Number: US-GLENMARK PHARMACEUTICALS-2018GMK033811

PATIENT

DRUGS (2)
  1. MUPIROCIN. [Suspect]
     Active Substance: MUPIROCIN
     Indication: SINUSITIS
  2. MUPIROCIN. [Suspect]
     Active Substance: MUPIROCIN
     Indication: NASAL SEPTUM DISORDER
     Dosage: 1 DF, TID
     Route: 045
     Dates: start: 20180305, end: 20180315

REACTIONS (11)
  - Impaired healing [Not Recovered/Not Resolved]
  - Erythema [Not Recovered/Not Resolved]
  - Application site irritation [Unknown]
  - Condition aggravated [Not Recovered/Not Resolved]
  - Drug ineffective for unapproved indication [Unknown]
  - Incorrect route of drug administration [Unknown]
  - Application site pain [Unknown]
  - Rhinorrhoea [Unknown]
  - Drug dispensing error [Unknown]
  - Nasal discomfort [Not Recovered/Not Resolved]
  - Epistaxis [Unknown]

NARRATIVE: CASE EVENT DATE: 20180305
